FAERS Safety Report 24701551 (Version 1)
Quarter: 2024Q4

REPORT INFORMATION
  Report Type: Spontaneous
  Country: US (occurrence: None)
  Receive Date: 20241204
  Receipt Date: 20241204
  Transmission Date: 20250114
  Serious: No
  Sender: Public
  Company Number: None

PATIENT
  Age: 19 Year
  Sex: Female
  Weight: 74.84 kg

DRUGS (1)
  1. APLISOL [Suspect]
     Active Substance: TUBERCULIN PURIFIED PROTEIN DERIVATIVE
     Indication: Tuberculin test
     Dosage: OTHER STRENGTH : 5TU/0.1ML;?FREQUENCY : ONCE;?
     Route: 023
     Dates: start: 20241204, end: 20241204

REACTIONS (2)
  - Wrong schedule [None]
  - Wrong technique in product usage process [None]

NARRATIVE: CASE EVENT DATE: 20241204
